FAERS Safety Report 9836455 (Version 2)
Quarter: 2014Q2

REPORT INFORMATION
  Report Type: Report from Study
  Country: FR (occurrence: FR)
  Receive Date: 20140123
  Receipt Date: 20140515
  Transmission Date: 20141212
  Serious: Yes (Life-Threatening)
  Sender: FDA-Public Use
  Company Number: FR-ROCHE-1336068

PATIENT
  Age: 66 Year
  Sex: Male
  Weight: 79 kg

DRUGS (12)
  1. RITUXIMAB [Suspect]
     Indication: CHRONIC LYMPHOCYTIC LEUKAEMIA
     Route: 065
     Dates: start: 20131028, end: 20131113
  2. FLUDARABINE [Suspect]
     Indication: CHRONIC LYMPHOCYTIC LEUKAEMIA
     Route: 065
     Dates: start: 20131028, end: 20131028
  3. CYCLOPHOSPHAMIDE [Suspect]
     Indication: CHRONIC LYMPHOCYTIC LEUKAEMIA
     Route: 065
     Dates: start: 20131028, end: 20131028
  4. PLAVIX [Concomitant]
  5. COTAREG [Concomitant]
  6. ZANIDIP [Concomitant]
  7. DIGOXINE [Concomitant]
  8. LASIX [Concomitant]
  9. LOVENOX [Concomitant]
     Route: 058
  10. CARDENSIEL [Concomitant]
     Route: 048
  11. COVERSYL [Concomitant]
     Route: 048
  12. ASPIRIN [Concomitant]
     Route: 048

REACTIONS (4)
  - Tachycardia [Recovered/Resolved]
  - Cardiac failure [Recovered/Resolved]
  - Systolic dysfunction [Recovered/Resolved]
  - Atrial fibrillation [Recovered/Resolved]
